FAERS Safety Report 25912092 (Version 1)
Quarter: 2025Q4

REPORT INFORMATION
  Report Type: Spontaneous
  Country: JP (occurrence: JP)
  Receive Date: 20251013
  Receipt Date: 20251013
  Transmission Date: 20260118
  Serious: Yes (Other)
  Sender: TOLMAR
  Company Number: JP-Tolmar-TLM-2025-07492

PATIENT
  Age: 44 Year
  Weight: 62.6 kg

DRUGS (14)
  1. TESTOSTERONE UNDECANOATE [Suspect]
     Active Substance: TESTOSTERONE UNDECANOATE
     Indication: Transgender hormonal therapy
  2. FINASTERIDE [Suspect]
     Active Substance: FINASTERIDE
     Indication: Androgenetic alopecia
     Route: 048
  3. FINASTERIDE [Suspect]
     Active Substance: FINASTERIDE
  4. BETAHISTINE MESILATE [Concomitant]
     Active Substance: BETAHISTINE MESILATE
  5. CHLORPROMAZINE HYDROCHLORIDE [Concomitant]
     Active Substance: CHLORPROMAZINE HYDROCHLORIDE
  6. NITRAZEPAM [Concomitant]
     Active Substance: NITRAZEPAM
  7. ETIZOLAM [Concomitant]
     Active Substance: ETIZOLAM
  8. VALPROATE SODIUM [Concomitant]
     Active Substance: VALPROATE SODIUM
  9. FOLIC ACID [Concomitant]
     Active Substance: FOLIC ACID
  10. LACOSAMIDE [Concomitant]
     Active Substance: LACOSAMIDE
  11. METHYLCOBALAMIN [Concomitant]
     Active Substance: METHYLCOBALAMIN
  12. KALLIDINOGENASE [Concomitant]
     Active Substance: KALLIDINOGENASE
  13. BROTIZOLAM [Concomitant]
     Active Substance: BROTIZOLAM
  14. LOXOPROFEN [Concomitant]
     Active Substance: LOXOPROFEN

REACTIONS (8)
  - Urethritis gonococcal [Recovered/Resolved]
  - Oral herpes [Unknown]
  - Back pain [Unknown]
  - Seborrhoeic dermatitis [Unknown]
  - Androgenetic alopecia [Recovering/Resolving]
  - Faeces soft [Unknown]
  - Diarrhoea [Unknown]
  - Drug ineffective for unapproved indication [Unknown]
